FAERS Safety Report 24564355 (Version 1)
Quarter: 2024Q4

REPORT INFORMATION
  Report Type: Spontaneous
  Country: US (occurrence: US)
  Receive Date: 20241030
  Receipt Date: 20241030
  Transmission Date: 20250115
  Serious: No
  Sender: LUPIN
  Company Number: US-LUPIN PHARMACEUTICALS INC.-2024-10615

PATIENT

DRUGS (1)
  1. ALBUTEROL SULFATE [Suspect]
     Active Substance: ALBUTEROL SULFATE
     Indication: Chronic obstructive pulmonary disease
     Dosage: UNK UNK, QID (2 PUFFS BY MOUTH 4 TIMES DAILY)
     Dates: start: 20240820

REACTIONS (4)
  - Device delivery system issue [Unknown]
  - Drug dose omission by device [Unknown]
  - Device deposit issue [Unknown]
  - No adverse event [Unknown]
